FAERS Safety Report 5262874-4 (Version None)
Quarter: 2007Q1

REPORT INFORMATION
  Report Type: 
  Country: None (occurrence: None)
  Receive Date: 20070308
  Receipt Date: 20070221
  Transmission Date: 20070707
  Serious: Yes (Hospitalization)
  Sender: FDA-Public Use
  Company Number: 153391ISR

PATIENT
  Age: 58 Year
  Sex: Female

DRUGS (1)
  1. LOPERAMIDE HCL [Suspect]
     Indication: DIARRHOEA
     Dosage: 8 MG (2 MG, 4 IN 1 D)

REACTIONS (10)
  - AMOEBIC COLITIS [None]
  - HYPOALBUMINAEMIA [None]
  - HYPONATRAEMIA [None]
  - ILEUS PARALYTIC [None]
  - LARGE INTESTINE PERFORATION [None]
  - LYMPHOPENIA [None]
  - MEGACOLON [None]
  - NEUTROPENIA [None]
  - PERITONITIS [None]
  - SEPSIS [None]
